FAERS Safety Report 5933770-1 (Version None)
Quarter: 2008Q4

REPORT INFORMATION
  Report Type: 
  Country: None (occurrence: None)
  Receive Date: 20081024
  Receipt Date: 20081010
  Transmission Date: 20090506
  Serious: Yes (Hospitalization)
  Sender: FDA-Public Use
  Company Number: 2006S1000144

PATIENT
  Age: 77 Year
  Sex: Male
  Weight: 90 kg

DRUGS (13)
  1. CUBICIN [Suspect]
     Indication: DEVICE RELATED INFECTION
     Dosage: 6 MG/KG;Q24H
  2. CUBICIN [Suspect]
     Indication: ENDOCARDITIS
     Dosage: 6 MG/KG;Q24H
  3. CUBICIN [Suspect]
     Indication: STAPHYLOCOCCAL BACTERAEMIA
     Dosage: 6 MG/KG;Q24H
  4. WARFARIN SODIUM [Concomitant]
  5. RIPAMPIN [Concomitant]
  6. ZYVOX [Concomitant]
  7. CELEBREX [Concomitant]
  8. TOPROL-XL [Concomitant]
  9. LIPITOR [Concomitant]
  10. PANTOPRAZOLE SODIUM [Concomitant]
  11. METHOCARBAMOL [Concomitant]
  12. VICODIN [Concomitant]
  13. CEFTRIAXONE [Concomitant]

REACTIONS (16)
  - ALDOLASE INCREASED [None]
  - ARTHRITIS INFECTIVE [None]
  - BLOOD CREATINE PHOSPHOKINASE INCREASED [None]
  - DEVICE RELATED INFECTION [None]
  - DOCUMENTED HYPERSENSITIVITY TO ADMINISTERED DRUG [None]
  - DRUG HYPERSENSITIVITY [None]
  - DRUG RESISTANCE [None]
  - INTERNATIONAL NORMALISED RATIO INCREASED [None]
  - INTERVERTEBRAL DISC DEGENERATION [None]
  - INTERVERTEBRAL DISCITIS [None]
  - METASTASES TO BONE [None]
  - OSTEOARTHRITIS [None]
  - OSTEOMYELITIS [None]
  - PROTHROMBIN TIME PROLONGED [None]
  - SEPTIC ARTHRITIS STAPHYLOCOCCAL [None]
  - STAPHYLOCOCCAL BACTERAEMIA [None]
